FAERS Safety Report 9049388 (Version 2)
Quarter: 2013Q1

REPORT INFORMATION
  Report Type: Report from Study
  Country: CA (occurrence: CA)
  Receive Date: 20130205
  Receipt Date: 20130319
  Transmission Date: 20140127
  Serious: Yes (Hospitalization)
  Sender: FDA-Public Use
  Company Number: CA-ROCHE-1187393

PATIENT
  Age: 66 None
  Sex: Female
  Weight: 70.3 kg

DRUGS (9)
  1. RITUXAN [Suspect]
     Indication: RHEUMATOID ARTHRITIS
     Dosage: DAY 1 AND 15
     Route: 042
     Dates: start: 20120416
  2. SULFASALAZINE [Concomitant]
  3. MICARDIS [Concomitant]
  4. LANSOPRAZOLE [Concomitant]
  5. LASIX [Concomitant]
  6. TYLENOL [Concomitant]
  7. PREDNISONE [Concomitant]
     Route: 048
     Dates: start: 20120415
  8. ACETAMINOPHEN [Concomitant]
     Indication: PREMEDICATION
     Route: 048
     Dates: start: 20120416
  9. DIPHENHYDRAMINE HYDROCHLORIDE [Concomitant]
     Indication: PREMEDICATION
     Route: 048
     Dates: start: 20120416

REACTIONS (1)
  - Cholelithiasis [Recovering/Resolving]
